FAERS Safety Report 4627426-5 (Version None)
Quarter: 2005Q1

REPORT INFORMATION
  Report Type: 
  Country: None (occurrence: None)
  Receive Date: 20050331
  Receipt Date: 20050322
  Transmission Date: 20050727
  Serious: Yes (Other)
  Sender: FDA-Public Use
  Company Number: HQWYE241022MAR05

PATIENT
  Sex: Female

DRUGS (1)
  1. MINOMYCIN (MINOCYLCINE, CAPSULE) [Suspect]
     Dosage: ORAL
     Route: 048

REACTIONS (1)
  - SHOCK [None]
